FAERS Safety Report 21534026 (Version 1)
Quarter: 2022Q4

REPORT INFORMATION
  Report Type: Spontaneous
  Country: CA (occurrence: CA)
  Receive Date: 20221101
  Receipt Date: 20221101
  Transmission Date: 20230112
  Serious: Yes (Other)
  Sender: FDA-Public Use
  Company Number: CA-BoehringerIngelheim-2022-BI-199629

PATIENT
  Age: 77 Year
  Sex: Male

DRUGS (29)
  1. PRAMIPEXOLE [Suspect]
     Active Substance: PRAMIPEXOLE
     Indication: Parkinsonian rest tremor
  2. PRAMIPEXOLE [Suspect]
     Active Substance: PRAMIPEXOLE
     Indication: Parkinson^s disease
  3. PRAMIPEXOLE [Suspect]
     Active Substance: PRAMIPEXOLE
     Indication: Head titubation
  4. AMANTADINE [Suspect]
     Active Substance: AMANTADINE
     Indication: Parkinsonian rest tremor
  5. AMANTADINE [Suspect]
     Active Substance: AMANTADINE
     Indication: Parkinson^s disease
  6. AMANTADINE [Suspect]
     Active Substance: AMANTADINE
     Indication: Head titubation
  7. BENSERAZIDE HYDROCHLORIDE\LEVODOPA [Suspect]
     Active Substance: BENSERAZIDE HYDROCHLORIDE\LEVODOPA
     Indication: Parkinson^s disease
  8. BENSERAZIDE HYDROCHLORIDE\LEVODOPA [Suspect]
     Active Substance: BENSERAZIDE HYDROCHLORIDE\LEVODOPA
  9. CLONAZEPAM [Suspect]
     Active Substance: CLONAZEPAM
     Indication: Parkinsonian rest tremor
  10. CLONAZEPAM [Suspect]
     Active Substance: CLONAZEPAM
     Indication: Parkinson^s disease
  11. CLONAZEPAM [Suspect]
     Active Substance: CLONAZEPAM
     Indication: Head titubation
  12. GABAPENTIN [Suspect]
     Active Substance: GABAPENTIN
     Indication: Parkinsonian rest tremor
  13. GABAPENTIN [Suspect]
     Active Substance: GABAPENTIN
     Indication: Parkinson^s disease
  14. GABAPENTIN [Suspect]
     Active Substance: GABAPENTIN
     Indication: Head titubation
  15. PRIMIDONE [Suspect]
     Active Substance: PRIMIDONE
     Indication: Parkinsonian rest tremor
  16. PRIMIDONE [Suspect]
     Active Substance: PRIMIDONE
     Indication: Head titubation
  17. PRIMIDONE [Suspect]
     Active Substance: PRIMIDONE
     Indication: Parkinson^s disease
  18. PROPRANOLOL [Suspect]
     Active Substance: PROPRANOLOL HYDROCHLORIDE
     Indication: Parkinsonian rest tremor
  19. PROPRANOLOL [Suspect]
     Active Substance: PROPRANOLOL HYDROCHLORIDE
     Indication: Parkinson^s disease
  20. PROPRANOLOL [Suspect]
     Active Substance: PROPRANOLOL HYDROCHLORIDE
     Indication: Head titubation
  21. ROPINIROLE [Suspect]
     Active Substance: ROPINIROLE
     Indication: Parkinsonian rest tremor
  22. ROPINIROLE [Suspect]
     Active Substance: ROPINIROLE
     Indication: Parkinson^s disease
  23. ROPINIROLE [Suspect]
     Active Substance: ROPINIROLE
     Indication: Head titubation
  24. ETHOPROPAZINE [Concomitant]
     Active Substance: ETHOPROPAZINE
     Indication: Parkinsonian rest tremor
  25. ETHOPROPAZINE [Concomitant]
     Active Substance: ETHOPROPAZINE
     Indication: Parkinson^s disease
  26. ETHOPROPAZINE [Concomitant]
     Active Substance: ETHOPROPAZINE
     Indication: Head titubation
  27. TRIHEXYPHENIDYL [Concomitant]
     Active Substance: TRIHEXYPHENIDYL
     Indication: Parkinsonian rest tremor
  28. TRIHEXYPHENIDYL [Concomitant]
     Active Substance: TRIHEXYPHENIDYL
     Indication: Parkinson^s disease
  29. TRIHEXYPHENIDYL [Concomitant]
     Active Substance: TRIHEXYPHENIDYL
     Indication: Head titubation

REACTIONS (4)
  - Hallucination [Unknown]
  - Oedema peripheral [Unknown]
  - Off label use [Unknown]
  - Somnolence [Unknown]
